FAERS Safety Report 10100190 (Version 2)
Quarter: 2014Q2

REPORT INFORMATION
  Report Type: Spontaneous
  Country: US (occurrence: US)
  Receive Date: 20140423
  Receipt Date: 20140423
  Transmission Date: 20141212
  Serious: Yes (Hospitalization)
  Sender: FDA-Public Use
  Company Number: US-GILEAD-2013-0075474

PATIENT
  Sex: Male
  Weight: 102.3 kg

DRUGS (6)
  1. LETAIRIS [Suspect]
     Indication: PULMONARY HYPERTENSION
     Dosage: 5 MG, QD
     Route: 048
     Dates: start: 20110421
  2. LETAIRIS [Suspect]
     Indication: EMBOLISM
     Dosage: 5 MG, QD
     Route: 048
     Dates: start: 20130515
  3. LETAIRIS [Suspect]
     Indication: AMPHETAMINES POSITIVE
  4. TYVASO [Suspect]
     Indication: COR PULMONALE CHRONIC
     Dosage: UNK
  5. ADCIRCA [Concomitant]
  6. COUMADIN                           /00014802/ [Concomitant]

REACTIONS (1)
  - Fluid retention [Not Recovered/Not Resolved]
